FAERS Safety Report 20094438 (Version 27)
Quarter: 2024Q4

REPORT INFORMATION
  Report Type: Report from Study
  Country: CA (occurrence: CA)
  Receive Date: 20211122
  Receipt Date: 20241004
  Transmission Date: 20250114
  Serious: Yes (Hospitalization, Other)
  Sender: ROCHE
  Company Number: CA-ROCHE-2849521

PATIENT
  Age: 39 Year
  Sex: Female

DRUGS (7)
  1. OCREVUS [Suspect]
     Active Substance: OCRELIZUMAB
     Indication: Primary progressive multiple sclerosis
     Dosage: 300 MG AT DAY 0 AND 14, THEN 600 MG EVERY 6 MONTH
     Route: 042
     Dates: start: 20210601
  2. OZEMPIC [Concomitant]
     Active Substance: SEMAGLUTIDE
  3. PROCHLORPERAZINE [Concomitant]
     Active Substance: PROCHLORPERAZINE
     Indication: Nausea
  4. HYDROMORPHONE [Concomitant]
     Active Substance: HYDROMORPHONE
     Indication: Pain
  5. TRAZODONE [Concomitant]
     Active Substance: TRAZODONE HYDROCHLORIDE
     Dosage: AT BED TIME
  6. TEMAZEPAM [Concomitant]
     Active Substance: TEMAZEPAM
     Dosage: EVERY OTHER DAY FOR 7 DAYS THEN STOPPED
  7. BISOPROLOL [Concomitant]
     Active Substance: BISOPROLOL\BISOPROLOL FUMARATE

REACTIONS (23)
  - Subcutaneous abscess [Not Recovered/Not Resolved]
  - Post procedural infection [Recovering/Resolving]
  - Intervertebral disc protrusion [Unknown]
  - COVID-19 [Recovering/Resolving]
  - Staphylococcal infection [Unknown]
  - Therapeutic nerve ablation [Unknown]
  - Pain in extremity [Not Recovered/Not Resolved]
  - Rhinalgia [Not Recovered/Not Resolved]
  - Oropharyngeal pain [Recovered/Resolved]
  - Skin ulcer [Not Recovered/Not Resolved]
  - Lymph gland infection [Not Recovered/Not Resolved]
  - Skin infection [Recovered/Resolved]
  - Discomfort [Not Recovered/Not Resolved]
  - Muscle spasms [Recovered/Resolved]
  - Fatigue [Not Recovered/Not Resolved]
  - Hypoaesthesia [Unknown]
  - Neuralgia [Not Recovered/Not Resolved]
  - Fatigue [Not Recovered/Not Resolved]
  - Muscle spasms [Not Recovered/Not Resolved]
  - Infected cyst [Not Recovered/Not Resolved]
  - Skin lesion [Unknown]
  - Bladder disorder [Unknown]
  - Mobility decreased [Unknown]

NARRATIVE: CASE EVENT DATE: 20210801
